FAERS Safety Report 6245582-2 (Version None)
Quarter: 2009Q2

REPORT INFORMATION
  Report Type: 
  Country: None (occurrence: None)
  Receive Date: 20090625
  Receipt Date: 20090615
  Transmission Date: 20091009
  Serious: Yes (Death, Hospitalization, Other)
  Sender: FDA-Public Use
  Company Number: DE-GENENTECH-284742

PATIENT
  Sex: Female

DRUGS (2)
  1. AVASTIN [Suspect]
     Indication: LUNG ADENOCARCINOMA
     Dosage: UNK
     Route: 042
     Dates: start: 20090403, end: 20090403
  2. PEMETREXED [Concomitant]
     Indication: DRUG USE FOR UNKNOWN INDICATION
     Dosage: UNK
     Dates: start: 20090403, end: 20090403

REACTIONS (6)
  - DISEASE PROGRESSION [None]
  - FAECALOMA [None]
  - PERITONITIS [None]
  - SEPTIC SHOCK [None]
  - SMALL INTESTINAL PERFORATION [None]
  - SUPERIOR VENA CAVAL OCCLUSION [None]
